FAERS Safety Report 4553414-3 (Version None)
Quarter: 2005Q1

REPORT INFORMATION
  Report Type: 
  Country: None (occurrence: None)
  Receive Date: 20050112
  Receipt Date: 20050105
  Transmission Date: 20050727
  Serious: Yes (Death)
  Sender: FDA-Public Use
  Company Number: 2005004042

PATIENT
  Age: 55 Year
  Sex: Female

DRUGS (3)
  1. CELEBREX [Suspect]
     Indication: OSTEOARTHRITIS
     Dosage: 400 MG (200 MG, 2 IN 1 D), ORAL
     Route: 048
     Dates: start: 20000101
  2. NOMEGESTROL ACETATE (NOMEGESTROL ACETATE) [Concomitant]
  3. NAPROXEN SODIUM [Concomitant]

REACTIONS (2)
  - DRY MOUTH [None]
  - HYPOTHERMIA [None]
